APPROVED DRUG PRODUCT: SERTRALINE HYDROCHLORIDE
Active Ingredient: SERTRALINE HYDROCHLORIDE
Strength: EQ 100MG BASE
Dosage Form/Route: TABLET;ORAL
Application: A077713 | Product #003
Applicant: APPCO PHARMA LLC
Approved: Feb 6, 2007 | RLD: No | RS: No | Type: DISCN